FAERS Safety Report 6227410-4 (Version None)
Quarter: 2009Q2

REPORT INFORMATION
  Report Type: 
  Country: None (occurrence: None)
  Receive Date: 20090610
  Receipt Date: 20090610
  Transmission Date: 20091009
  Serious: Yes (Hospitalization)
  Sender: FDA-Public Use
  Company Number: None

PATIENT
  Sex: Female
  Weight: 56.8 kg

DRUGS (13)
  1. LOVENOX [Suspect]
     Indication: DEEP VEIN THROMBOSIS
     Dosage: 1 MG/KG Q12H SQ
     Dates: start: 20090605, end: 20090609
  2. COUMADIN [Suspect]
     Indication: DEEP VEIN THROMBOSIS
     Dosage: 2MG DAILY PO
     Route: 048
     Dates: start: 20090605, end: 20090609
  3. ASPIRIN [Concomitant]
  4. CARDIZEM [Concomitant]
  5. VICODIN [Concomitant]
  6. LANTUS [Concomitant]
  7. LEXAPRO [Concomitant]
  8. LISINOPRIL [Concomitant]
  9. METFORMIN HCL [Concomitant]
  10. NEURONTIN [Concomitant]
  11. PRILOSEC [Concomitant]
  12. PREDNISONE [Concomitant]
  13. ZYPREXA [Concomitant]

REACTIONS (2)
  - HAEMORRHAGE [None]
  - HYPOTENSION [None]
